FAERS Safety Report 13000853 (Version 3)
Quarter: 2017Q1

REPORT INFORMATION
  Report Type: Spontaneous
  Country: US (occurrence: US)
  Receive Date: 20161206
  Receipt Date: 20170116
  Transmission Date: 20170428
  Serious: Yes (Other)
  Sender: FDA-Public Use
  Company Number: US-JNJCP-30000363506

PATIENT
  Age: 23 Year
  Sex: Female
  Weight: 60 kg

DRUGS (1)
  1. JOHNSONS PRODUCTS [Suspect]
     Active Substance: UNSPECIFIED INGREDIENT
     Indication: PRODUCT USED FOR UNKNOWN INDICATION
     Dosage: ONCE OR TWICE EVERY DAY
     Route: 061
     Dates: start: 20070312

REACTIONS (1)
  - Ovarian cancer [Recovered/Resolved]

NARRATIVE: CASE EVENT DATE: 20081008
